FAERS Safety Report 6049012-5 (Version None)
Quarter: 2009Q1

REPORT INFORMATION
  Report Type: 
  Country: None (occurrence: None)
  Receive Date: 20090123
  Receipt Date: 20090119
  Transmission Date: 20090719
  Serious: Yes (Death, Hospitalization, Other)
  Sender: FDA-Public Use
  Company Number: IT-ELI_LILLY_AND_COMPANY-IT200901002604

PATIENT
  Age: 60 Year
  Sex: Male
  Weight: 120 kg

DRUGS (8)
  1. BYETTA [Suspect]
     Dosage: 5 UG, DAILY (1/D)
     Route: 065
     Dates: start: 20080901, end: 20080101
  2. BYETTA [Suspect]
     Dosage: 10 UG, DAILY (1/D)
     Route: 065
     Dates: start: 20080101, end: 20080101
  3. BYETTA [Suspect]
     Dosage: 20 UG, DAILY (1/D)
     Route: 065
     Dates: start: 20080101, end: 20080101
  4. BYETTA [Suspect]
     Dosage: 10 UG, DAILY (1/D)
     Route: 065
     Dates: start: 20080101, end: 20081201
  5. STATIN                             /00084401/ [Concomitant]
     Dosage: UNK, UNKNOWN
     Route: 065
  6. TICLOPIDINE HCL [Concomitant]
     Dosage: UNK, UNKNOWN
     Route: 065
  7. LOVAZA [Concomitant]
     Dosage: UNK, UNKNOWN
     Route: 065
  8. ACE INHIBITOR NOS [Concomitant]
     Dosage: UNK, UNKNOWN
     Route: 065

REACTIONS (5)
  - MALAISE [None]
  - NEPHROLITHIASIS [None]
  - PAIN [None]
  - PYELOCALIECTASIS [None]
  - RENAL FAILURE ACUTE [None]
